FAERS Safety Report 17980731 (Version 2)
Quarter: 2020Q4

REPORT INFORMATION
  Report Type: Other
  Country: DE (occurrence: DE)
  Receive Date: 20200704
  Receipt Date: 20201019
  Transmission Date: 20210113
  Serious: Yes (Hospitalization)
  Sender: FDA-Public Use
  Company Number: DE-ROCHE-2045694

PATIENT
  Age: 41 Year
  Sex: Female
  Weight: 70 kg

DRUGS (15)
  1. TOCILIZUMAB. [Suspect]
     Active Substance: TOCILIZUMAB
     Indication: RHEUMATOID ARTHRITIS
     Dosage: TOTAL MONTHLY DOSE 162 MG
     Route: 058
     Dates: start: 20161025, end: 20171019
  2. SECUKINUMAB. [Concomitant]
     Active Substance: SECUKINUMAB
     Indication: RHEUMATOID ARTHRITIS
     Route: 058
     Dates: start: 20180223, end: 20180306
  3. LODOTRA [Concomitant]
     Active Substance: PREDNISONE
     Route: 048
     Dates: start: 20171202
  4. DECORTIN [Concomitant]
     Active Substance: PREDNISONE
     Indication: RHEUMATOID ARTHRITIS
     Route: 048
     Dates: start: 20161025, end: 20170131
  5. METHOTREXAT [Concomitant]
     Active Substance: METHOTREXATE
     Route: 058
     Dates: start: 20171215, end: 20180306
  6. LODOTRA [Concomitant]
     Active Substance: PREDNISONE
     Indication: RHEUMATOID ARTHRITIS
     Route: 048
     Dates: start: 20170902, end: 20171122
  7. DECORTIN [Concomitant]
     Active Substance: PREDNISONE
     Route: 048
     Dates: start: 20170201, end: 20170515
  8. TOCILIZUMAB. [Suspect]
     Active Substance: TOCILIZUMAB
     Route: 058
     Dates: start: 20171109, end: 20171123
  9. VOLTAREN [Concomitant]
     Active Substance: DICLOFENAC SODIUM
     Route: 048
  10. OSSOFORTIN FORTE [Concomitant]
     Indication: OSTEOPOROSIS PROPHYLAXIS
     Dosage: 1-0-0
     Route: 048
     Dates: start: 20090119
  11. LODOTRA [Concomitant]
     Active Substance: PREDNISONE
     Route: 048
     Dates: start: 20180223
  12. LODOTRA [Concomitant]
     Active Substance: PREDNISONE
     Route: 048
     Dates: start: 20170207, end: 20170901
  13. IBUPROFEN. [Concomitant]
     Active Substance: IBUPROFEN
     Route: 048
  14. METHOTREXAT [Concomitant]
     Active Substance: METHOTREXATE
     Indication: RHEUMATOID ARTHRITIS
     Route: 058
     Dates: start: 20111004, end: 20171122
  15. LODOTRA [Concomitant]
     Active Substance: PREDNISONE
     Route: 048
     Dates: start: 20171123, end: 20171201

REACTIONS (7)
  - Sacroiliitis [Not Recovered/Not Resolved]
  - Upper respiratory tract infection [Recovered/Resolved]
  - Influenza like illness [Recovered/Resolved]
  - Dactylitis [Recovered/Resolved]
  - Sleep disorder [Recovered/Resolved]
  - Spinal osteoarthritis [Not Recovered/Not Resolved]
  - Drug ineffective [Unknown]

NARRATIVE: CASE EVENT DATE: 20170220
